FAERS Safety Report 17127367 (Version 8)
Quarter: 2023Q4

REPORT INFORMATION
  Report Type: Spontaneous
  Country: FR (occurrence: FR)
  Receive Date: 20191209
  Receipt Date: 20231226
  Transmission Date: 20240110
  Serious: Yes (Hospitalization, Other)
  Sender: FDA-Public Use
  Company Number: FR-MYLANLABS-2019M1114963

PATIENT
  Age: 64 Year
  Sex: Female

DRUGS (13)
  1. ATAZANAVIR [Interacting]
     Active Substance: ATAZANAVIR
     Indication: HIV infection
     Dosage: UNK
     Route: 065
  2. ATAZANAVIR [Interacting]
     Active Substance: ATAZANAVIR
     Indication: Acquired immunodeficiency syndrome
  3. BUDESONIDE [Interacting]
     Active Substance: BUDESONIDE
     Indication: Asthma
     Dosage: UNK
     Route: 055
  4. BUDESONIDE [Interacting]
     Active Substance: BUDESONIDE
     Indication: Asthma
  5. EMTRICITABINE\TENOFOVIR [Interacting]
     Active Substance: EMTRICITABINE\TENOFOVIR
     Indication: HIV infection
     Dosage: UNK
     Route: 065
  6. EFAVIRENZ\EMTRICITABINE\TENOFOVIR DISOPROXIL FUMARATE [Suspect]
     Active Substance: EFAVIRENZ\EMTRICITABINE\TENOFOVIR DISOPROXIL FUMARATE
     Indication: HIV infection
     Dosage: 0.25 UNK
     Route: 065
  7. BUDESONIDE\FORMOTEROL [Suspect]
     Active Substance: BUDESONIDE\FORMOTEROL
     Indication: Asthma
     Route: 055
  8. FORMOTEROL [Interacting]
     Active Substance: FORMOTEROL
     Indication: Asthma
     Dosage: UNK
     Route: 055
  9. FORMOTEROL [Interacting]
     Active Substance: FORMOTEROL
     Indication: Asthma
  10. RITONAVIR [Interacting]
     Active Substance: RITONAVIR
     Indication: HIV infection
     Dosage: UNK
     Route: 065
  11. RITONAVIR [Interacting]
     Active Substance: RITONAVIR
     Indication: Acquired immunodeficiency syndrome
  12. ATAZANAVIR\RITONAVIR [Suspect]
     Active Substance: ATAZANAVIR\RITONAVIR
     Indication: HIV infection
     Dosage: UNK
     Route: 065
  13. EMTRICITABINE\TENOFOVIR [Suspect]
     Active Substance: EMTRICITABINE\TENOFOVIR

REACTIONS (3)
  - Cushing^s syndrome [Unknown]
  - Drug interaction [Unknown]
  - Product administration error [Unknown]
